FAERS Safety Report 21233996 (Version 1)
Quarter: 2022Q3

REPORT INFORMATION
  Report Type: Spontaneous
  Country: JP (occurrence: JP)
  Receive Date: 20220819
  Receipt Date: 20220819
  Transmission Date: 20221027
  Serious: Yes (Hospitalization, Other)
  Sender: FDA-Public Use
  Company Number: JP-ELI_LILLY_AND_COMPANY-JP202208007184

PATIENT
  Age: 56 Year
  Sex: Female
  Weight: 58 kg

DRUGS (8)
  1. CYRAMZA [Suspect]
     Active Substance: RAMUCIRUMAB
     Indication: Lung adenocarcinoma stage IV
     Dosage: UNK
     Route: 041
     Dates: start: 202111
  2. PREDNISOLONE [Suspect]
     Active Substance: PREDNISOLONE
     Indication: Pulmonary toxicity
     Dosage: 10 MG
     Route: 048
  3. CELECOXIB [Suspect]
     Active Substance: CELECOXIB
     Indication: Cancer pain
     Dosage: 200 MG, DAILY
     Route: 065
  4. ACETAMINOPHEN [Suspect]
     Active Substance: ACETAMINOPHEN
     Indication: Cancer pain
     Dosage: 4000 MG, DAILY
     Route: 042
  5. DOCETAXEL [Concomitant]
     Active Substance: DOCETAXEL
     Indication: Lung adenocarcinoma stage IV
     Dosage: UNK
     Dates: start: 202111
  6. LANSOPRAZOLE [Concomitant]
     Active Substance: LANSOPRAZOLE
     Dosage: 15 MG, DAILY
  7. HYDROMORPHONE HYDROCHLORIDE [Concomitant]
     Active Substance: HYDROMORPHONE HYDROCHLORIDE
     Indication: Cancer pain
     Dosage: 24 MG, DAILY
  8. PREGABALIN [Concomitant]
     Active Substance: PREGABALIN
     Dosage: 300 MG, DAILY

REACTIONS (4)
  - Gastrointestinal mucosal disorder [Recovered/Resolved]
  - Acute hepatic failure [Recovered/Resolved]
  - Renal impairment [Recovered/Resolved]
  - Diarrhoea [Unknown]
